FAERS Safety Report 9798481 (Version 3)
Quarter: 2014Q1

REPORT INFORMATION
  Report Type: Spontaneous
  Country: DE (occurrence: DE)
  Receive Date: 20140106
  Receipt Date: 20140213
  Transmission Date: 20141002
  Serious: Yes (Hospitalization, Other)
  Sender: FDA-Public Use
  Company Number: DE-BAYER-2014-000510

PATIENT
  Age: 43 Year
  Sex: Female
  Weight: 95 kg

DRUGS (4)
  1. BETAFERON [Suspect]
     Indication: MULTIPLE SCLEROSIS
     Dosage: UNK
     Route: 058
  2. CLEXANE [Concomitant]
     Dosage: 40 MG, UNK
     Route: 058
  3. NOVALGIN [Concomitant]
     Dosage: 500 MG, QID
  4. SULTAMICILLIN [Concomitant]

REACTIONS (5)
  - Lymphadenitis [Recovered/Resolved]
  - Postoperative abscess [Recovering/Resolving]
  - Pyrexia [None]
  - Chills [None]
  - Lymphoid tissue operation [None]
